FAERS Safety Report 19326954 (Version 1)
Quarter: 2021Q2

REPORT INFORMATION
  Report Type: Spontaneous
  Country: CA (occurrence: CA)
  Receive Date: 20210528
  Receipt Date: 20210528
  Transmission Date: 20210717
  Serious: Yes (Death)
  Sender: FDA-Public Use
  Company Number: CA-TEVA-2021-CA-1914834

PATIENT
  Age: 61 Year
  Sex: Female

DRUGS (13)
  1. TOPIRAMATE. [Concomitant]
     Active Substance: TOPIRAMATE
  2. ATIVAN [Suspect]
     Active Substance: LORAZEPAM
     Route: 065
  3. QUETIAPINE FUMARATE. [Suspect]
     Active Substance: QUETIAPINE FUMARATE
     Route: 048
  4. METOPROLOL. [Concomitant]
     Active Substance: METOPROLOL
  5. CLOPIDOGREL BISULFATE. [Concomitant]
     Active Substance: CLOPIDOGREL BISULFATE
  6. PREDNISONE. [Concomitant]
     Active Substance: PREDNISONE
  7. GABAPENTIN. [Suspect]
     Active Substance: GABAPENTIN
     Route: 065
  8. PHENYTOIN. [Concomitant]
     Active Substance: PHENYTOIN
  9. PROPOFOL. [Concomitant]
     Active Substance: PROPOFOL
  10. CYMBALTA [Suspect]
     Active Substance: DULOXETINE HYDROCHLORIDE
     Route: 065
  11. ASA [Concomitant]
     Active Substance: ASPIRIN
  12. OXYCODONE [Suspect]
     Active Substance: OXYCODONE
     Route: 065
  13. METHOTREXATE. [Concomitant]
     Active Substance: METHOTREXATE
     Route: 048

REACTIONS (6)
  - Serotonin syndrome [Fatal]
  - Hepatic cirrhosis [Fatal]
  - Ischaemic cerebral infarction [Fatal]
  - Ascites [Fatal]
  - Brain herniation [Fatal]
  - Brain oedema [Fatal]
